FAERS Safety Report 20532221 (Version 1)
Quarter: 2022Q1

REPORT INFORMATION
  Report Type: Spontaneous
  Country: US (occurrence: None)
  Receive Date: 20220301
  Receipt Date: 20220301
  Transmission Date: 20220423
  Serious: Yes (Hospitalization)
  Sender: FDA-Public Use
  Company Number: None

PATIENT
  Age: 68 Year
  Sex: Male
  Weight: 67 kg

DRUGS (2)
  1. HALOPERIDOL [Suspect]
     Active Substance: HALOPERIDOL
     Indication: Confusional state
     Dosage: FREQUENCY : ONCE;?
     Route: 030
     Dates: start: 20220126, end: 20220126
  2. HALOPERIDOL [Suspect]
     Active Substance: HALOPERIDOL
     Indication: Hallucination

REACTIONS (7)
  - Resuscitation [None]
  - Areflexia [None]
  - Shock [None]
  - Tachycardia [None]
  - Atrial flutter [None]
  - Atrioventricular block [None]
  - Torsade de pointes [None]

NARRATIVE: CASE EVENT DATE: 20220126
